FAERS Safety Report 22610832 (Version 1)
Quarter: 2023Q2

REPORT INFORMATION
  Report Type: Report from Study
  Country: US (occurrence: US)
  Receive Date: 20230616
  Receipt Date: 20230616
  Transmission Date: 20230721
  Serious: Yes (Other)
  Sender: FDA-Public Use
  Company Number: US-GLAXOSMITHKLINE-US2023061233

PATIENT

DRUGS (1)
  1. NIRAPARIB [Suspect]
     Active Substance: NIRAPARIB
     Indication: Ovarian cancer
     Dosage: 200 MG, QD
     Route: 048
     Dates: start: 20230307

REACTIONS (4)
  - Neoplasm progression [Unknown]
  - Pruritus [Not Recovered/Not Resolved]
  - Fatigue [Unknown]
  - Dry skin [Not Recovered/Not Resolved]
